FAERS Safety Report 7583388-2 (Version None)
Quarter: 2011Q2

REPORT INFORMATION
  Report Type: 
  Country: None (occurrence: None)
  Receive Date: 20110628
  Receipt Date: 20110628
  Transmission Date: 20111010
  Serious: Yes (Hospitalization)
  Sender: FDA-Public Use
  Company Number: None

PATIENT
  Sex: Female
  Weight: 94.6 kg

DRUGS (13)
  1. REVLIMID [Suspect]
     Indication: MULTIPLE MYELOMA
     Dosage: 25 MG ON DAYS 1-14
     Dates: start: 20110411
  2. VORINOSTAT 100 MG MILLENNIUM [Suspect]
     Indication: MULTIPLE MYELOMA
     Dosage: 100 MG ON DAYS 1-14
     Dates: start: 20110411
  3. BACTRIM [Concomitant]
  4. LOVENOX [Concomitant]
  5. MORPHINE [Concomitant]
  6. ONDANSETRON [Concomitant]
  7. NEXIUM [Concomitant]
  8. AMBIEN [Concomitant]
  9. AMBIEN [Concomitant]
  10. FLONASE [Concomitant]
  11. ACYCLOVIR [Concomitant]
  12. LISINOPRIL AND HYDROCHLOROTHIAZIDE [Concomitant]
  13. LORAZEPAM [Concomitant]

REACTIONS (3)
  - NAUSEA [None]
  - VOMITING [None]
  - DIARRHOEA [None]
